FAERS Safety Report 23387218 (Version 2)
Quarter: 2024Q1

REPORT INFORMATION
  Report Type: Spontaneous
  Country: JP (occurrence: JP)
  Receive Date: 20240110
  Receipt Date: 20240131
  Transmission Date: 20240410
  Serious: Yes (Other)
  Sender: FDA-Public Use
  Company Number: JP-GSKNCCC-Case-01886898_AE-79010

PATIENT
  Age: 62 Year
  Sex: Female

DRUGS (1)
  1. BOTOX [Suspect]
     Active Substance: ONABOTULINUMTOXINA
     Indication: Facial spasm
     Dosage: TIME INTERVAL: AS NECESSARY: BOTOX DOSAGE 20 UNIT
     Route: 065
     Dates: start: 2019, end: 2019

REACTIONS (1)
  - Glaucoma [Unknown]
